FAERS Safety Report 9297762 (Version 4)
Quarter: 2013Q3

REPORT INFORMATION
  Report Type: Report from Study
  Country: AU (occurrence: AU)
  Receive Date: 20130520
  Receipt Date: 20130701
  Transmission Date: 20140515
  Serious: Yes (Hospitalization)
  Sender: FDA-Public Use
  Company Number: PHHY2013AU049434

PATIENT
  Age: 30 Year
  Sex: Male

DRUGS (6)
  1. CLOZARIL [Suspect]
     Indication: SCHIZOPHRENIA
     Dosage: 350 MG
     Route: 048
     Dates: start: 20041125
  2. OLANZAPINE [Concomitant]
     Dosage: 10 MG, TID
     Route: 048
     Dates: start: 20130517
  3. OLANZAPINE [Concomitant]
     Dosage: 10 MG, BID
     Route: 048
  4. CLONAZEPAM [Concomitant]
     Dosage: 2 MG (NOCTE), UNK
     Route: 048
     Dates: start: 20130517
  5. SODIUM VALPROATE [Concomitant]
     Dosage: 1 G, BID
     Route: 048
     Dates: end: 20130527
  6. SODIUM VALPROATE [Concomitant]
     Dosage: 1200 MG(1 G MANE AND 200MG NOCTE), UNK
     Route: 048
     Dates: start: 20130527

REACTIONS (9)
  - Slow response to stimuli [Recovering/Resolving]
  - Elevated mood [Recovering/Resolving]
  - Schizophrenia, disorganised type [Recovering/Resolving]
  - Mental impairment [Recovering/Resolving]
  - Drug ineffective [Unknown]
  - Antipsychotic drug level above therapeutic [Unknown]
  - Antipsychotic drug level below therapeutic [Unknown]
  - Platelet count decreased [Not Recovered/Not Resolved]
  - Neutrophil count increased [Unknown]
